FAERS Safety Report 24542312 (Version 3)
Quarter: 2024Q4

REPORT INFORMATION
  Report Type: Report from Study
  Country: CA (occurrence: CA)
  Receive Date: 20241023
  Receipt Date: 20241031
  Transmission Date: 20250115
  Serious: Yes (Other)
  Sender: CURRAX PHARMACEUTICALS
  Company Number: CA-BAUSCH-BL-2024-014270

PATIENT
  Sex: Female

DRUGS (6)
  1. CONTRAVE [Suspect]
     Active Substance: BUPROPION HYDROCHLORIDE\NALTREXONE HYDROCHLORIDE
     Indication: Depression
     Dosage: 90/8 MG, 1 TABLET Q AM
     Route: 048
     Dates: start: 20240919, end: 20240925
  2. CONTRAVE [Suspect]
     Active Substance: BUPROPION HYDROCHLORIDE\NALTREXONE HYDROCHLORIDE
     Indication: Obesity
     Dosage: 90/8 MG, 1 TABLET Q AM, 1 TABLET Q PM
     Route: 048
     Dates: start: 20240926, end: 20241002
  3. CONTRAVE [Suspect]
     Active Substance: BUPROPION HYDROCHLORIDE\NALTREXONE HYDROCHLORIDE
     Indication: Weight control
     Dosage: 90/8 MG, 2 TABLET Q AM, 1 TABLET Q PM (1 IN 12 HR)
     Route: 048
     Dates: start: 20241003, end: 20241009
  4. CONTRAVE [Suspect]
     Active Substance: BUPROPION HYDROCHLORIDE\NALTREXONE HYDROCHLORIDE
     Dosage: 90/8 MG, 2 TABLET Q AM, 2 TABLET Q PM
     Route: 048
     Dates: start: 20241010, end: 20241013
  5. CONTRAVE [Suspect]
     Active Substance: BUPROPION HYDROCHLORIDE\NALTREXONE HYDROCHLORIDE
     Dosage: 90/8 MG, 1 TABLET Q AM, 2 TABLET Q PM
     Route: 048
     Dates: start: 20241014, end: 202410
  6. CONTRAVE [Suspect]
     Active Substance: BUPROPION HYDROCHLORIDE\NALTREXONE HYDROCHLORIDE
     Dosage: 90/8 MG, 1 TABLET Q AM
     Route: 048
     Dates: start: 202410

REACTIONS (7)
  - Bedridden [Unknown]
  - Loss of personal independence in daily activities [Unknown]
  - Dyspepsia [Not Recovered/Not Resolved]
  - Drug intolerance [Unknown]
  - Fatigue [Not Recovered/Not Resolved]
  - Nausea [Not Recovered/Not Resolved]
  - Disturbance in attention [Unknown]

NARRATIVE: CASE EVENT DATE: 20240101
